FAERS Safety Report 4843871-7 (Version None)
Quarter: 2005Q4

REPORT INFORMATION
  Report Type: 
  Country: None (occurrence: None)
  Receive Date: 20051130
  Receipt Date: 20051130
  Transmission Date: 20060501
  Serious: Yes (Hospitalization)
  Sender: FDA-Public Use
  Company Number: None

PATIENT
  Sex: Female

DRUGS (1)
  1. FENTANYL [Suspect]
     Indication: BREAST CANCER
     Dosage: 150 -200 MG

REACTIONS (2)
  - COR PULMONALE [None]
  - RESPIRATORY DISORDER [None]
